FAERS Safety Report 6631167-2 (Version None)
Quarter: 2010Q1

REPORT INFORMATION
  Report Type: 
  Country: None (occurrence: None)
  Receive Date: 20100309
  Receipt Date: 20100223
  Transmission Date: 20100710
  Serious: Yes (Other)
  Sender: FDA-Public Use
  Company Number: 231887J10USA

PATIENT
  Age: 25 Year
  Sex: Male

DRUGS (5)
  1. REBIF [Suspect]
     Indication: MULTIPLE SCLEROSIS
     Dosage: 44 MCG, 3 IN 1 WEEKS, SUBCUTANEOUS
     Route: 058
     Dates: start: 20091103
  2. KLONOPIN [Concomitant]
  3. TAGAMET (CIMETIDINE HYDROCHLORIDE) [Concomitant]
  4. DRONABINOL [Concomitant]
  5. WELLBUTRIN [Concomitant]

REACTIONS (4)
  - FEAR OF NEEDLES [None]
  - INJECTION SITE PAIN [None]
  - MASTOCYTOSIS [None]
  - METASTASES TO BONE [None]
